FAERS Safety Report 8903913 (Version 3)
Quarter: 2012Q4

REPORT INFORMATION
  Report Type: 
  Country: US (occurrence: US)
  Receive Date: 20121112
  Receipt Date: 20121128
  Transmission Date: 20130627
  Serious: Yes (Hospitalization, Other)
  Sender: FDA-Public Use
  Company Number: US-ASTRAZENECA-2012SE84101

PATIENT
  Age: 61 Year
  Sex: Female

DRUGS (2)
  1. SYMBICORT PMDI [Suspect]
     Dosage: 160/4.5MCG, DAILY
     Route: 055
  2. NEXIUM [Suspect]
     Route: 048

REACTIONS (6)
  - Brain neoplasm [Unknown]
  - Cerebrovascular accident [Unknown]
  - Pancreatic carcinoma [Unknown]
  - Adverse event [Unknown]
  - Dyspepsia [Unknown]
  - Drug dose omission [Unknown]
